FAERS Safety Report 26072712 (Version 1)
Quarter: 2025Q4

REPORT INFORMATION
  Report Type: Report from Study
  Country: US (occurrence: None)
  Receive Date: 20251120
  Receipt Date: 20251120
  Transmission Date: 20260117
  Serious: Yes (Hospitalization, Other)
  Sender: UCB
  Company Number: US-UCBSA-2025027660

PATIENT
  Age: 72 Year

DRUGS (2)
  1. BIMEKIZUMAB [Suspect]
     Active Substance: BIMEKIZUMAB
     Indication: Ankylosing spondylitis
     Dosage: 160 MILLIGRAM, EV 4 WEEKS
  2. VITAMIN B12 [Concomitant]
     Active Substance: CYANOCOBALAMIN
     Indication: Product used for unknown indication

REACTIONS (11)
  - Knee arthroplasty [Recovering/Resolving]
  - Aspergillus infection [Recovered/Resolved]
  - Post procedural infection [Not Recovered/Not Resolved]
  - Procedural pain [Not Recovered/Not Resolved]
  - Fungal infection [Recovering/Resolving]
  - Spinal pain [Not Recovered/Not Resolved]
  - Musculoskeletal stiffness [Not Recovered/Not Resolved]
  - Injury [Not Recovered/Not Resolved]
  - Dysphagia [Recovered/Resolved]
  - Carpal tunnel syndrome [Not Recovered/Not Resolved]
  - Intentional dose omission [Unknown]
